FAERS Safety Report 14861255 (Version 1)
Quarter: 2018Q2

REPORT INFORMATION
  Report Type: Report from Study
  Country: US (occurrence: US)
  Receive Date: 20180508
  Receipt Date: 20180508
  Transmission Date: 20180711
  Serious: Yes (Hospitalization, Other)
  Sender: FDA-Public Use
  Company Number: US-GILEAD-2018-0336961

PATIENT
  Age: 24 Year
  Sex: Female

DRUGS (17)
  1. POTASSIUM CHLORIDE. [Concomitant]
     Active Substance: POTASSIUM CHLORIDE
  2. METOLAZONE. [Concomitant]
     Active Substance: METOLAZONE
  3. MAGNESIUM [Concomitant]
     Active Substance: MAGNESIUM
  4. ADCIRCA [Concomitant]
     Active Substance: TADALAFIL
  5. MULTI-VITAMINS VITAFIT [Concomitant]
     Active Substance: VITAMINS
  6. POTASSIUM [Concomitant]
     Active Substance: POTASSIUM
  7. BUMEX [Concomitant]
     Active Substance: BUMETANIDE
  8. TYVASO [Concomitant]
     Active Substance: TREPROSTINIL
  9. FUROSEMIDE. [Concomitant]
     Active Substance: FUROSEMIDE
  10. PREDNISONE. [Concomitant]
     Active Substance: PREDNISONE
  11. MULTIVIT                           /07504101/ [Concomitant]
     Active Substance: VITAMINS
  12. AMBRISENTAN [Suspect]
     Active Substance: AMBRISENTAN
     Indication: PULMONARY HYPERTENSION
     Dosage: 10 MG, QD
     Route: 065
     Dates: start: 20170930
  13. COLOCORT [Concomitant]
     Active Substance: HYDROCORTISONE
  14. FAMOTIDINE. [Concomitant]
     Active Substance: FAMOTIDINE
  15. BUMETANIDE. [Concomitant]
     Active Substance: BUMETANIDE
  16. DIGOX                              /00017701/ [Concomitant]
  17. REMODULIN [Concomitant]
     Active Substance: TREPROSTINIL

REACTIONS (2)
  - Colitis ulcerative [Not Recovered/Not Resolved]
  - Pulmonary hypertension [Not Recovered/Not Resolved]
